FAERS Safety Report 7515949-0 (Version None)
Quarter: 2011Q2

REPORT INFORMATION
  Report Type: 
  Country: None (occurrence: None)
  Receive Date: 20110601
  Receipt Date: 20110520
  Transmission Date: 20111010
  Serious: Yes (Other)
  Sender: FDA-Public Use
  Company Number: US-AMGEN-USASP2011026438

PATIENT
  Age: 46 Year
  Sex: Female

DRUGS (7)
  1. LORTAB [Concomitant]
  2. ENBREL [Suspect]
     Indication: RHEUMATOID ARTHRITIS
     Dosage: 50 MG, QWK
     Route: 058
     Dates: start: 20060101
  3. FOLIC ACID [Concomitant]
  4. METHOTREXATE [Concomitant]
  5. FLEXERIL [Concomitant]
  6. AMLODIPINE [Concomitant]
  7. CLONIDINE [Concomitant]

REACTIONS (2)
  - AMNESIA [None]
  - COGNITIVE DISORDER [None]
